FAERS Safety Report 24176531 (Version 1)
Quarter: 2024Q3

REPORT INFORMATION
  Report Type: Spontaneous
  Country: US (occurrence: US)
  Receive Date: 20240806
  Receipt Date: 20240806
  Transmission Date: 20241017
  Serious: No
  Sender: CSL BEHRING
  Company Number: US-BEH-2024176805

PATIENT
  Sex: Female

DRUGS (1)
  1. HIZENTRA [Suspect]
     Active Substance: HUMAN IMMUNOGLOBULIN G
     Indication: Immunodeficiency common variable
     Dosage: 48 G, QMT (INFUSED AS 12GM EVERY WEEK USING 4 INFUSION SITES)
     Route: 065

REACTIONS (2)
  - Skin reaction [Unknown]
  - Pruritus [Unknown]
